FAERS Safety Report 5952098-7 (Version None)
Quarter: 2008Q4

REPORT INFORMATION
  Report Type: 
  Country: None (occurrence: None)
  Receive Date: 20081113
  Receipt Date: 20080429
  Transmission Date: 20090506
  Serious: Yes (Disabling)
  Sender: FDA-Public Use
  Company Number: A0722141A

PATIENT
  Age: 76 Year
  Sex: Male
  Weight: 114.5 kg

DRUGS (2)
  1. COREG [Suspect]
     Indication: DRUG USE FOR UNKNOWN INDICATION
     Dosage: 3.125MG TWICE PER DAY
     Route: 048
     Dates: start: 20080310, end: 20080415
  2. UNKNOWN [Concomitant]

REACTIONS (2)
  - ARTHRALGIA [None]
  - MYALGIA [None]
